FAERS Safety Report 5450632-7 (Version None)
Quarter: 2007Q3

REPORT INFORMATION
  Report Type: 
  Country: None (occurrence: None)
  Receive Date: 20070910
  Receipt Date: 20070901
  Transmission Date: 20080115
  Serious: Yes (Other)
  Sender: FDA-Public Use
  Company Number: 2007SP017542

PATIENT
  Age: 57 Year
  Sex: Female

DRUGS (4)
  1. PEG-INTRON [Suspect]
     Indication: HEPATITIS C
     Dosage: SC
     Route: 058
     Dates: start: 20070808
  2. RIBAVIRIN [Suspect]
     Indication: HEPATITIS C
     Dosage: PO
     Route: 048
     Dates: start: 20070808
  3. PREVACID [Concomitant]
  4. INHALER (UNSPECIFIED INHALER) [Concomitant]

REACTIONS (11)
  - ABDOMINAL PAIN UPPER [None]
  - ABDOMINAL TENDERNESS [None]
  - CHILLS [None]
  - DEHYDRATION [None]
  - FATIGUE [None]
  - HAEMATEMESIS [None]
  - INFLUENZA LIKE ILLNESS [None]
  - MUSCULOSKELETAL CHEST PAIN [None]
  - NAUSEA [None]
  - PRODUCTIVE COUGH [None]
  - PYREXIA [None]
